FAERS Safety Report 12433544 (Version 2)
Quarter: 2016Q2

REPORT INFORMATION
  Report Type: Spontaneous
  Country: HR (occurrence: HR)
  Receive Date: 20160603
  Receipt Date: 20160610
  Transmission Date: 20160815
  Serious: Yes (Other)
  Sender: FDA-Public Use
  Company Number: HR-GILEAD-2016-0216799

PATIENT
  Age: 65 Year
  Sex: Male

DRUGS (5)
  1. NEBILET [Concomitant]
     Active Substance: NEBIVOLOL
     Dosage: 1.25 MG, UNK
  2. REODON [Concomitant]
     Dosage: 2 MG, TID
  3. HARVONI [Suspect]
     Active Substance: LEDIPASVIR\SOFOSBUVIR
     Indication: PRODUCT USED FOR UNKNOWN INDICATION
     Dosage: UNK
     Route: 065
     Dates: start: 20160323
  4. RIBAVIRIN TEVA [Concomitant]
     Active Substance: RIBAVIRIN
     Dosage: 1200/D
     Dates: start: 20160323
  5. CARDOX                             /00639302/ [Concomitant]
     Dosage: 40 MG, BID

REACTIONS (1)
  - Haemolytic anaemia [Not Recovered/Not Resolved]
